FAERS Safety Report 10419316 (Version 1)
Quarter: 2014Q3

REPORT INFORMATION
  Report Type: Spontaneous
  Country: DE (occurrence: DE)
  Receive Date: 20140829
  Receipt Date: 20140829
  Transmission Date: 20150326
  Serious: Yes (Other)
  Sender: FDA-Public Use
  Company Number: GXKR2014DE003323

PATIENT
  Sex: Male

DRUGS (1)
  1. NARATRIPTAN HEXAL [Suspect]
     Active Substance: NARATRIPTAN HYDROCHLORIDE
     Dosage: 8 TO 12 TABLETS/MONTH ON A REGULAR BASIS
     Route: 048

REACTIONS (3)
  - Drug abuse [Unknown]
  - Head titubation [Unknown]
  - Restlessness [Unknown]
